FAERS Safety Report 24743132 (Version 1)
Quarter: 2024Q4

REPORT INFORMATION
  Report Type: Spontaneous
  Country: US (occurrence: US)
  Receive Date: 20241217
  Receipt Date: 20241217
  Transmission Date: 20250114
  Serious: No
  Sender: FERRING
  Company Number: US-FERRINGPH-2024FE05775

PATIENT
  Sex: Female

DRUGS (1)
  1. REBYOTA [Suspect]
     Active Substance: DONOR HUMAN STOOL
     Indication: Product used for unknown indication
     Route: 065

REACTIONS (1)
  - Diarrhoea [Unknown]
